FAERS Safety Report 16964662 (Version 2)
Quarter: 2019Q4

REPORT INFORMATION
  Report Type: Spontaneous
  Country: US (occurrence: US)
  Receive Date: 20191028
  Receipt Date: 20191121
  Transmission Date: 20200122
  Serious: No
  Sender: FDA-Public Use
  Company Number: US-BIOGEN-2019BI00799918

PATIENT
  Sex: Female

DRUGS (1)
  1. TYSABRI [Suspect]
     Active Substance: NATALIZUMAB
     Indication: MULTIPLE SCLEROSIS
     Route: 042
     Dates: start: 20191015

REACTIONS (5)
  - Fatigue [Unknown]
  - Gait disturbance [Unknown]
  - Vision blurred [Unknown]
  - Central nervous system lesion [Unknown]
  - Magnetic resonance imaging abnormal [Unknown]
